FAERS Safety Report 16003966 (Version 1)
Quarter: 2019Q1

REPORT INFORMATION
  Report Type: Spontaneous
  Country: ID (occurrence: ID)
  Receive Date: 20190226
  Receipt Date: 20190226
  Transmission Date: 20190418
  Serious: Yes (Death, Other)
  Sender: FDA-Public Use
  Company Number: ID-009507513-1902IDN008767

PATIENT
  Sex: Female

DRUGS (1)
  1. KEYTRUDA [Suspect]
     Active Substance: PEMBROLIZUMAB
     Indication: NON-SMALL CELL LUNG CANCER
     Dosage: 100 MILLIGRAM (2 VIAL), 1 TIMES PER MONTH, RECEIVED 2 CYCLE
     Route: 042

REACTIONS (3)
  - Diabetes mellitus [Fatal]
  - Immune-mediated adverse reaction [Fatal]
  - Inappropriate schedule of product administration [Unknown]
